FAERS Safety Report 15959551 (Version 1)
Quarter: 2019Q1

REPORT INFORMATION
  Report Type: Spontaneous
  Country: FR (occurrence: FR)
  Receive Date: 20190214
  Receipt Date: 20190214
  Transmission Date: 20190417
  Serious: Yes (Hospitalization)
  Sender: FDA-Public Use
  Company Number: FR-ACCORD-107077

PATIENT
  Age: 78 Year
  Sex: Female
  Weight: 74.4 kg

DRUGS (8)
  1. RAMIPRIL. [Concomitant]
     Active Substance: RAMIPRIL
  2. CARDENSIEL [Concomitant]
     Active Substance: BISOPROLOL FUMARATE
  3. FUROSEMIDE. [Suspect]
     Active Substance: FUROSEMIDE
     Indication: HYPERTENSION
     Route: 048
     Dates: end: 201803
  4. LEVOTHYROX [Concomitant]
     Active Substance: LEVOTHYROXINE
  5. PARACETAMOL [Concomitant]
     Active Substance: ACETAMINOPHEN
  6. CYMBALTA [Suspect]
     Active Substance: DULOXETINE HYDROCHLORIDE
     Indication: DEPRESSION
     Dosage: 30 MG, GASTRO-RESISTANT CAPSULE
     Route: 048
     Dates: end: 201803
  7. COUMADINE [Suspect]
     Active Substance: WARFARIN SODIUM
     Indication: ATRIAL FIBRILLATION
     Dosage: 5 MG, TABLET BREACKABLE
     Route: 048
     Dates: start: 20180109, end: 20180307
  8. SERESTA [Concomitant]
     Active Substance: OXAZEPAM

REACTIONS (4)
  - Frontotemporal dementia [Recovered/Resolved]
  - Disturbance in attention [Recovered/Resolved]
  - Subdural haematoma [Recovering/Resolving]
  - Subcutaneous haematoma [Recovering/Resolving]

NARRATIVE: CASE EVENT DATE: 20180307
